FAERS Safety Report 19972957 (Version 1)
Quarter: 2021Q4

REPORT INFORMATION
  Report Type: Spontaneous
  Country: US (occurrence: US)
  Receive Date: 20211018
  Receipt Date: 20211018
  Transmission Date: 20220303
  Serious: No
  Sender: FDA-Public Use
  Company Number: None

PATIENT
  Age: 22 Year
  Sex: Female

DRUGS (1)
  1. EPOPROSTENOL [Suspect]
     Active Substance: EPOPROSTENOL
     Indication: Pulmonary arterial hypertension
     Dosage: ?          OTHER DOSE:27 NG/KG/MIN;OTHER FREQUENCY:CONTINUOUS;OTHER ROUTE:IV
     Route: 042
     Dates: start: 202103

REACTIONS (4)
  - Dyspnoea [None]
  - Fatigue [None]
  - Product dispensing error [None]
  - Product preparation error [None]

NARRATIVE: CASE EVENT DATE: 20210901
